FAERS Safety Report 17657064 (Version 1)
Quarter: 2020Q2

REPORT INFORMATION
  Report Type: Spontaneous
  Country: FR (occurrence: FR)
  Receive Date: 20200410
  Receipt Date: 20200410
  Transmission Date: 20200713
  Serious: Yes (Hospitalization)
  Sender: FDA-Public Use
  Company Number: FR-CELGENEUS-FRA-20200208534

PATIENT
  Age: 11 Year
  Sex: Male
  Weight: 19.2 kg

DRUGS (27)
  1. VENETOCLAX. [Concomitant]
     Active Substance: VENETOCLAX
     Indication: NEOPLASM MALIGNANT
     Dosage: 30 MILLIGRAM
     Route: 048
     Dates: start: 20191230, end: 20191230
  2. FASTURTEC [Concomitant]
     Active Substance: RASBURICASE
     Indication: PROPHYLAXIS
     Dosage: 3 MILLIGRAM
     Route: 041
     Dates: start: 20191230
  3. VENETOCLAX. [Concomitant]
     Active Substance: VENETOCLAX
     Dosage: 120 MILLIGRAM
     Route: 048
     Dates: start: 20200101, end: 20200112
  4. BACTRIM [Concomitant]
     Active Substance: SULFAMETHOXAZOLE\TRIMETHOPRIM
     Indication: PROPHYLAXIS OF NAUSEA AND VOMITING
     Dosage: 500 MILLIGRAM
     Route: 041
     Dates: start: 20191230
  5. HYDROCORTISONE. [Concomitant]
     Active Substance: HYDROCORTISONE
     Indication: PRODUCT USED FOR UNKNOWN INDICATION
     Dosage: 50 MILLIGRAM
     Route: 041
     Dates: start: 20200103
  6. CEFEPIME [Concomitant]
     Active Substance: CEFEPIME HYDROCHLORIDE
     Indication: PYREXIA
  7. ACIDE TRANEXAMIQUE [Concomitant]
     Indication: HAEMORRHAGE
     Dosage: 4 GRAM
     Route: 061
     Dates: start: 20190113
  8. ZINC. [Concomitant]
     Active Substance: ZINC
     Indication: PRODUCT USED FOR UNKNOWN INDICATION
     Dosage: 300 MILLILITER
     Route: 061
     Dates: start: 20191230
  9. AMIKACINE [Concomitant]
     Active Substance: AMIKACIN
     Indication: PYREXIA
  10. AZACITIDINE. [Suspect]
     Active Substance: AZACITIDINE
     Indication: ACUTE MYELOID LEUKAEMIA
     Dosage: 75 MILLIGRAM/SQ. METER
     Route: 041
     Dates: start: 20200102
  11. HYDROXYCARBAMIDE [Concomitant]
     Active Substance: HYDROXYUREA
     Indication: BONE MARROW DISORDER
     Dosage: 1000 MILLIGRAM
     Route: 048
     Dates: start: 20191223
  12. LINEZOLIDE [Concomitant]
     Active Substance: LINEZOLID
     Indication: INFECTION
     Dosage: DOSE NOT PROVIDED
     Route: 065
     Dates: start: 20200109, end: 20200115
  13. CEFEPIME [Concomitant]
     Active Substance: CEFEPIME HYDROCHLORIDE
     Indication: INFECTION
     Dosage: DOSE NOT PROVIDED
     Route: 065
     Dates: start: 20200117, end: 20200120
  14. AMOXICILLINE [Concomitant]
     Active Substance: AMOXICILLIN
     Indication: OTITIS MEDIA ACUTE
     Dosage: DOSE NOT PROVIDED
     Route: 065
     Dates: start: 20200207, end: 20200217
  15. MICAFUNGINE [Concomitant]
     Active Substance: MICAFUNGIN
     Indication: NEUTROPENIA
     Dosage: 120 MILLILITER
     Route: 041
     Dates: start: 20200127
  16. LEVOCETIRIZINE [Concomitant]
     Active Substance: LEVOCETIRIZINE
     Indication: ANTIALLERGIC THERAPY
     Route: 048
     Dates: start: 20191230
  17. POLARAMINE [Concomitant]
     Active Substance: DEXCHLORPHENIRAMINE MALEATE
     Indication: ANTIALLERGIC THERAPY
     Dosage: 2.5 MILLIGRAM
     Route: 041
     Dates: start: 20200103
  18. MYCAMINE [Concomitant]
     Active Substance: MICAFUNGIN SODIUM
     Indication: ANTIFUNGAL PROPHYLAXIS
     Dosage: 40 MILLIGRAM
     Route: 041
     Dates: start: 20200127
  19. VENETOCLAX. [Concomitant]
     Active Substance: VENETOCLAX
     Dosage: 120 MILLIGRAM
     Route: 048
     Dates: start: 20200113, end: 20200226
  20. SODIUM BICARBONATE. [Concomitant]
     Active Substance: SODIUM BICARBONATE
     Indication: PRODUCT USED FOR UNKNOWN INDICATION
     Dosage: 300 MILLILITER
     Route: 061
     Dates: start: 20191230
  21. AMIKACINE [Concomitant]
     Active Substance: AMIKACIN
     Indication: INFECTION
     Dosage: DOSE NOT PROVIDED
     Route: 065
     Dates: start: 20200117, end: 20200120
  22. CEFEPIME [Concomitant]
     Active Substance: CEFEPIME HYDROCHLORIDE
     Indication: FEBRILE NEUTROPENIA
  23. VENETOCLAX. [Concomitant]
     Active Substance: VENETOCLAX
     Dosage: 120 MILLIGRAM
     Route: 048
     Dates: start: 20200224
  24. VENETOCLAX. [Concomitant]
     Active Substance: VENETOCLAX
     Dosage: 60 MILLIGRAM
     Route: 048
     Dates: start: 20191231, end: 20191231
  25. CHLORHEXIDIN [Concomitant]
     Active Substance: CHLORHEXIDINE
     Indication: PRODUCT USED FOR UNKNOWN INDICATION
     Dosage: 300 MILLILITER
     Route: 061
     Dates: start: 20191230
  26. ONDANSETRON [Concomitant]
     Active Substance: ONDANSETRON
     Indication: PROPHYLAXIS OF NAUSEA AND VOMITING
     Dosage: 4 MILLIGRAM
     Route: 041
     Dates: start: 20191230
  27. AMIKACINE [Concomitant]
     Active Substance: AMIKACIN
     Indication: FEBRILE NEUTROPENIA

REACTIONS (2)
  - Influenza [Recovered/Resolved]
  - Febrile neutropenia [Recovered/Resolved]

NARRATIVE: CASE EVENT DATE: 20200216
